FAERS Safety Report 17837465 (Version 2)
Quarter: 2020Q3

REPORT INFORMATION
  Report Type: Spontaneous
  Country: JP (occurrence: JP)
  Receive Date: 20200529
  Receipt Date: 20200902
  Transmission Date: 20201103
  Serious: Yes (Death, Other)
  Sender: FDA-Public Use
  Company Number: JP-AUROBINDO-AUR-APL-2020-026368

PATIENT
  Age: 76 Year
  Sex: Male

DRUGS (2)
  1. PRALATREXATE INJECTION [Suspect]
     Active Substance: PRALATREXATE
     Indication: CUTANEOUS T-CELL LYMPHOMA STAGE IV
     Dosage: 30 MILLIEQUIVALENT PER SQUARE METRE
     Route: 042
     Dates: start: 20200613, end: 20200627
  2. LEUCOVORIN. [Concomitant]
     Active Substance: LEUCOVORIN
     Indication: PRODUCT USED FOR UNKNOWN INDICATION
     Dosage: UNK
     Route: 065

REACTIONS (1)
  - Lung infiltration [Fatal]
